FAERS Safety Report 9709861 (Version 3)
Quarter: 2013Q4

REPORT INFORMATION
  Report Type: Spontaneous
  Country: US (occurrence: US)
  Receive Date: 20131126
  Receipt Date: 20131223
  Transmission Date: 20140711
  Serious: No
  Sender: FDA-Public Use
  Company Number: US-PFIZER INC-2013333798

PATIENT
  Age: 54 Year
  Sex: Male
  Weight: 100 kg

DRUGS (5)
  1. ADVIL CONGESTION RELIEF [Suspect]
     Indication: PARANASAL SINUS HYPERSECRETION
     Dosage: 200MG/10MG, UNK
     Dates: start: 201311
  2. PILOSEC [Concomitant]
     Indication: GASTROOESOPHAGEAL REFLUX DISEASE
     Dosage: 40 MG, TWO TIMES A DAY
  3. INDERAL [Concomitant]
     Indication: HYPERTENSION
     Dosage: 80 MG, TWO TIMES A DAY
  4. ATIVAN [Concomitant]
     Indication: ANXIETY
     Dosage: 1 MG, UNK
  5. EFFEXOR [Concomitant]
     Indication: DEPRESSION
     Dosage: 15 MG (TWO TABLETS EACH OF 7.5 MG) DAILY

REACTIONS (1)
  - Drug ineffective [Unknown]
